FAERS Safety Report 4603342-X (Version None)
Quarter: 2005Q1

REPORT INFORMATION
  Report Type: 
  Country: None (occurrence: None)
  Receive Date: 20050308
  Receipt Date: 20050223
  Transmission Date: 20050727
  Serious: Yes (Other)
  Sender: FDA-Public Use
  Company Number: A130109

PATIENT
  Age: 65 Year
  Sex: Female

DRUGS (4)
  1. ZITHROMAX [Suspect]
     Indication: PERIODONTITIS
     Dosage: 500 MG (1 IN 1 D), ORAL
     Route: 048
     Dates: start: 20011217, end: 20011217
  2. GENERAL NUTRIENTS (GENERAL NUTRIENTS) [Suspect]
     Indication: ILL-DEFINED DISORDER
  3. GENERAL NUTRIENTS (GENERAL NUTRIENTS) [Suspect]
     Indication: ILL-DEFINED DISORDER
  4. AMPHOTERICIN B [Concomitant]

REACTIONS (2)
  - ANAPHYLACTIC SHOCK [None]
  - FOOD ALLERGY [None]
